FAERS Safety Report 6909326-0 (Version None)
Quarter: 2010Q3

REPORT INFORMATION
  Report Type: 
  Country: None (occurrence: None)
  Receive Date: 20100805
  Receipt Date: 20100727
  Transmission Date: 20110219
  Serious: Yes (Other)
  Sender: FDA-Public Use
  Company Number: PHHY2010JP46543

PATIENT
  Age: 26 Year
  Sex: Female

DRUGS (2)
  1. VOLTAREN [Suspect]
     Dosage: UNK
     Route: 048
     Dates: start: 20081201, end: 20081201
  2. VOLTAREN [Suspect]
     Dosage: UNK
     Route: 054
     Dates: start: 20081201, end: 20081201

REACTIONS (1)
  - ACUTE GENERALISED EXANTHEMATOUS PUSTULOSIS [None]
